FAERS Safety Report 8163543-3 (Version None)
Quarter: 2012Q1

REPORT INFORMATION
  Report Type: 
  Country: None (occurrence: None)
  Receive Date: 20120224
  Receipt Date: 20120215
  Transmission Date: 20120608
  Serious: Yes (Hospitalization)
  Sender: FDA-Public Use
  Company Number: FI-NOVOPROD-341617

PATIENT
  Age: 62 Year
  Sex: Male
  Weight: 140 kg

DRUGS (10)
  1. VICTOZA [Suspect]
     Indication: TYPE 2 DIABETES MELLITUS
     Dosage: 1.8 MG, QD
     Route: 058
     Dates: start: 20101009, end: 20111201
  2. LANTUS [Concomitant]
     Indication: TYPE 2 DIABETES MELLITUS
     Dosage: 150 IU, QD
     Route: 058
  3. METFORMIN HCL [Concomitant]
     Indication: TYPE 2 DIABETES MELLITUS
     Dosage: 2X2
     Route: 048
  4. ATACAND [Concomitant]
     Dosage: 1X1
     Route: 048
  5. SIMVASTATIN [Concomitant]
     Dosage: 1X1
     Route: 048
  6. FELODIPINE [Concomitant]
     Dosage: 1X1
     Route: 048
  7. LASIX [Concomitant]
     Dosage: 1X1
     Route: 048
  8. MOXONIDIN ACTAVIS [Concomitant]
     Dosage: 1X1
     Route: 048
  9. RASILEZ [Concomitant]
     Dosage: 1X1
     Route: 048
     Dates: end: 20120101
  10. NOVORAPID [Concomitant]
     Dosage: 80 IU (20+30+30 ), QD
     Route: 058

REACTIONS (1)
  - PANCREATITIS NECROTISING [None]
